FAERS Safety Report 4974079-2 (Version None)
Quarter: 2006Q2

REPORT INFORMATION
  Report Type: 
  Country: None (occurrence: None)
  Receive Date: 20060417
  Receipt Date: 20060406
  Transmission Date: 20061013
  Serious: Yes (Hospitalization)
  Sender: FDA-Public Use
  Company Number: FR-GLAXOSMITHKLINE-B0419968A

PATIENT
  Age: 53 Year
  Sex: Male

DRUGS (11)
  1. PAROXETINE HYDROCHLORIDE [Suspect]
     Route: 048
  2. RISPERDAL [Suspect]
     Dosage: 1MG PER DAY
     Route: 048
     Dates: start: 20040101, end: 20050218
  3. MEPRONIZINE [Concomitant]
     Route: 048
  4. RIVOTRIL [Concomitant]
     Route: 065
  5. VILOXAZINE HCL [Concomitant]
     Dosage: 100MG UNKNOWN
     Route: 048
  6. AKINETON [Concomitant]
     Dosage: 4MG UNKNOWN
     Route: 048
  7. ZESTRIL [Concomitant]
     Route: 048
  8. PREVISCAN [Concomitant]
     Dosage: 20MG UNKNOWN
     Route: 048
  9. TEMESTA [Concomitant]
     Route: 048
  10. LOXEN [Concomitant]
     Route: 065
  11. TENORMIN [Concomitant]
     Route: 065

REACTIONS (15)
  - AGITATION [None]
  - BLOOD CREATINE PHOSPHOKINASE INCREASED [None]
  - BODY TEMPERATURE DECREASED [None]
  - DEMYELINATION [None]
  - DISORIENTATION [None]
  - DIVERTICULUM INTESTINAL [None]
  - DYSPHAGIA [None]
  - ECCHYMOSIS [None]
  - FALL [None]
  - HYPONATRAEMIA [None]
  - LUNG DISORDER [None]
  - RECTAL HAEMORRHAGE [None]
  - RESPIRATORY DISTRESS [None]
  - SEPTIC SHOCK [None]
  - TREMOR [None]
